FAERS Safety Report 9596611 (Version 1)
Quarter: 2013Q4

REPORT INFORMATION
  Report Type: Spontaneous
  Country: US (occurrence: US)
  Receive Date: 20131004
  Receipt Date: 20131004
  Transmission Date: 20140711
  Serious: No
  Sender: FDA-Public Use
  Company Number: US-AMGEN-USASP2012069017

PATIENT
  Sex: Female

DRUGS (5)
  1. ENBREL [Suspect]
     Indication: PRODUCT USED FOR UNKNOWN INDICATION
     Dosage: 50 MG, QWK
     Route: 058
  2. ALEVE [Concomitant]
     Dosage: 220 MG, UNK
  3. LISINOPRIL [Concomitant]
     Dosage: 5 MG, UNK
  4. RANITIDINE [Concomitant]
     Dosage: 150 MG, UNK
  5. POTASSIUM [Concomitant]
     Dosage: 75 MG, UNK

REACTIONS (1)
  - Fatigue [Unknown]
